FAERS Safety Report 8597689-2 (Version None)
Quarter: 2012Q3

REPORT INFORMATION
  Report Type: 
  Country: None (occurrence: None)
  Receive Date: 20120816
  Receipt Date: 20120816
  Transmission Date: 20120928
  Serious: Yes (Other)
  Sender: FDA-Public Use
  Company Number: JP-PFIZER INC-2012200213

PATIENT

DRUGS (1)
  1. VARENICLINE [Suspect]
     Dosage: UNK
     Route: 048

REACTIONS (1)
  - CYSTITIS BACTERIAL [None]
